FAERS Safety Report 18035051 (Version 1)
Quarter: 2020Q3

REPORT INFORMATION
  Report Type: Spontaneous
  Country: DE (occurrence: DE)
  Receive Date: 20200717
  Receipt Date: 20200717
  Transmission Date: 20201103
  Serious: Yes (Other)
  Sender: FDA-Public Use
  Company Number: DE-UCBSA-2020027708

PATIENT
  Age: 82 Year
  Sex: Female

DRUGS (8)
  1. ETHOSUXIMIDE. [Concomitant]
     Active Substance: ETHOSUXIMIDE
     Dosage: 250 MILLIGRAM
  2. VALPROIC ACID. [Concomitant]
     Active Substance: VALPROIC ACID
     Indication: GENERALISED TONIC-CLONIC SEIZURE
     Dosage: UNKNOWN DOSE
  3. PRIMIDONE. [Concomitant]
     Active Substance: PRIMIDONE
     Indication: PETIT MAL EPILEPSY
     Dosage: 625 MILLIGRAM
  4. PRIMIDONE. [Concomitant]
     Active Substance: PRIMIDONE
     Dosage: 500 MILLIGRAM
  5. LEVETIRACETAM. [Suspect]
     Active Substance: LEVETIRACETAM
     Indication: GENERALISED TONIC-CLONIC SEIZURE
     Dosage: UNKNOWN DOSE
  6. LEVETIRACETAM. [Suspect]
     Active Substance: LEVETIRACETAM
     Indication: STATUS EPILEPTICUS
     Dosage: DOSE INCREASED TO 3000 MILLIGRAM
  7. LEVETIRACETAM. [Suspect]
     Active Substance: LEVETIRACETAM
     Indication: OFF LABEL USE
  8. ETHOSUXIMIDE. [Concomitant]
     Active Substance: ETHOSUXIMIDE
     Indication: PETIT MAL EPILEPSY
     Dosage: 500 MILLIGRAM

REACTIONS (3)
  - Status epilepticus [Recovered/Resolved]
  - Off label use [Unknown]
  - Generalised tonic-clonic seizure [Recovered/Resolved]
